FAERS Safety Report 24417348 (Version 2)
Quarter: 2024Q4

REPORT INFORMATION
  Report Type: Spontaneous
  Country: US (occurrence: US)
  Receive Date: 20241009
  Receipt Date: 20241104
  Transmission Date: 20250114
  Serious: Yes (Death, Hospitalization)
  Sender: TEVA
  Company Number: US-TEVA-VS-3251465

PATIENT
  Age: 55 Year
  Sex: Male

DRUGS (5)
  1. MINOCYCLINE [Suspect]
     Active Substance: MINOCYCLINE HYDROCHLORIDE
     Indication: Osteomyelitis chronic
     Route: 065
  2. PREDNISONE [Suspect]
     Active Substance: PREDNISONE
     Indication: Drug-induced liver injury
     Route: 065
  3. SULFAMETHOXAZOLE\TRIMETHOPRIM [Suspect]
     Active Substance: SULFAMETHOXAZOLE\TRIMETHOPRIM
     Indication: Osteomyelitis chronic
     Dosage: TRIMETHOPRIM-SULFAMETHOXAZOLE
     Route: 065
  4. VANCOMYCIN [Concomitant]
     Active Substance: VANCOMYCIN
     Indication: Sepsis
     Route: 065
  5. MEROPENEM [Concomitant]
     Active Substance: MEROPENEM
     Indication: Sepsis
     Route: 065

REACTIONS (11)
  - Drug-induced liver injury [Fatal]
  - Metabolic encephalopathy [Unknown]
  - Pancreatitis [Unknown]
  - Chronic hepatic failure [Unknown]
  - Acute kidney injury [Unknown]
  - Drug ineffective [Fatal]
  - Respiratory failure [Unknown]
  - Ascites [Unknown]
  - Hypervolaemia [Unknown]
  - Cholestasis [Unknown]
  - Multisystem inflammatory syndrome [Unknown]
